FAERS Safety Report 10064134 (Version 2)
Quarter: 2013Q4

REPORT INFORMATION
  Report Type: Spontaneous
  Country: US (occurrence: None)
  Receive Date: 20131114
  Receipt Date: 20131122
  Transmission Date: 20140711
  Serious: Yes (Hospitalization, Other)
  Sender: FDA-Public Use
  Company Number: 2013-1780

PATIENT
  Age: 80 Year
  Sex: Female

DRUGS (11)
  1. KYPROLIS (CARFILZOMIB) (INJECTION FOR INFUSION) (CARFILZOMIB) [Suspect]
     Indication: PRODUCT USED FOR UNKNOWN INDICATION
     Dosage: 30 MG, 2 IN 1 WK INTRAVENOUS
     Route: 042
     Dates: start: 2013
  2. FOLIC ACID (FOLIC ACID (FOLIC ACID) [Concomitant]
  3. AMLODIPINE (AMLODIPINE) (AMLODIPINE) [Concomitant]
  4. METOPROLOL (METOPROLOL) (METOPROLOL) [Concomitant]
  5. CALCIUM WITH VITAMIN D (COLECALCIFEROL, CALCIUM CARBONATE) (COLECALCIFEROL, CALCIUM CARBONATE) [Concomitant]
  6. PROTONIX (PANTOPRAZOLE SODIUM SESQUIHYDRATE) (PANTOPRAZOLE SODIUM SESQUIHYDRATE) [Concomitant]
  7. CALCIFEROL (ERGOCALCIFEROL) (ERGOCALCIFEROL) [Concomitant]
  8. MARINOL (DRONABINOL) (DRONABINOL) [Concomitant]
  9. NITROGLYCERINE SL (GLYCERYL TRINITRATE) (GLYCERYL TRINITRATE) [Concomitant]
  10. TYLENOL (PARACETAMOL) (PARACETAMOL) [Concomitant]
  11. BUPROPION (BUPROPION) (BUPROPION) [Concomitant]

REACTIONS (4)
  - Myocardial infarction [None]
  - Hypoglycaemia [None]
  - Decreased appetite [None]
  - Asthenia [None]
